FAERS Safety Report 5211477-6 (Version None)
Quarter: 2006Q4

REPORT INFORMATION
  Report Type: 
  Country: None (occurrence: None)
  Receive Date: 20061115
  Receipt Date: 20060719
  Transmission Date: 20070319
  Serious: No
  Sender: FDA-Public Use
  Company Number: 200614802BWH

PATIENT
  Age: 63 Year
  Sex: Male

DRUGS (9)
  1. NEXAVAR [Suspect]
     Indication: RENAL CELL CARCINOMA STAGE UNSPECIFIED
     Dosage: 400 MG, BID, ORAL
     Route: 048
     Dates: start: 20060203
  2. NORVASC [Concomitant]
  3. TRAZODONE HCL [Concomitant]
  4. DECADRON [Concomitant]
  5. LANTUS [Concomitant]
  6. HUMALOG [Concomitant]
  7. LIPRAM (AMYLASE, LIPASE, PROTEASE) [Concomitant]
  8. PREVACID [Concomitant]
  9. DILANTIN [Concomitant]

REACTIONS (3)
  - ACNE [None]
  - AGEUSIA [None]
  - MUSCLE SPASMS [None]
